FAERS Safety Report 5247784-0 (Version None)
Quarter: 2007Q1

REPORT INFORMATION
  Report Type: 
  Country: None (occurrence: None)
  Receive Date: 20070227
  Receipt Date: 20070227
  Transmission Date: 20070707
  Serious: Yes (Death, Hospitalization)
  Sender: FDA-Public Use
  Company Number: None

PATIENT
  Age: 39 Year
  Sex: Female

DRUGS (2)
  1. COLCHICINE 0.6 MG [Suspect]
     Indication: DRUG HYPERSENSITIVITY
     Dosage: 0.6 MG DAILY PO
     Route: 048
  2. COLCHICINE 0.6 MG [Suspect]
     Indication: GOUT
     Dosage: 0.6 MG DAILY PO
     Route: 048

REACTIONS (4)
  - BLOOD PRESSURE SYSTOLIC DECREASED [None]
  - DRUG TOXICITY [None]
  - MENTAL STATUS CHANGES [None]
  - UPPER GASTROINTESTINAL HAEMORRHAGE [None]
